FAERS Safety Report 5777037-3 (Version None)
Quarter: 2008Q2

REPORT INFORMATION
  Report Type: 
  Country: None (occurrence: None)
  Receive Date: 20080617
  Receipt Date: 20080617
  Transmission Date: 20081010
  Serious: Yes (Hospitalization)
  Sender: FDA-Public Use
  Company Number: None

PATIENT

DRUGS (11)
  1. MYCOPHENOLATE MOFETIL [Suspect]
     Indication: PROPHYLAXIS AGAINST TRANSPLANT REJECTION
     Dosage: 500MG PO Q12H
     Route: 048
     Dates: start: 20080318, end: 20080321
  2. PREDNISONE [Concomitant]
  3. TACROLIMUS [Concomitant]
  4. NYSTATIN [Concomitant]
  5. VALGANCICLOVIR HCL [Concomitant]
  6. LANSOPRAZOLE [Concomitant]
  7. PRAVASTATIN [Concomitant]
  8. INSULIN [Concomitant]
  9. METOPROLOL [Concomitant]
  10. FUROSEMIDE [Concomitant]
  11. ACETAMINOPHEN AND OXYCODONE HCL [Concomitant]

REACTIONS (5)
  - ABDOMINAL DISCOMFORT [None]
  - GASTROOESOPHAGEAL REFLUX DISEASE [None]
  - NAUSEA [None]
  - STOMACH DISCOMFORT [None]
  - VOMITING [None]
